FAERS Safety Report 8454861 (Version 3)
Quarter: 2013Q2

REPORT INFORMATION
  Report Type: Spontaneous
  Country: US (occurrence: US)
  Receive Date: 20120312
  Receipt Date: 20130521
  Transmission Date: 20140414
  Serious: Yes (Hospitalization, Other)
  Sender: FDA-Public Use
  Company Number: US-ROCHE-1010296

PATIENT
  Sex: Female
  Weight: 49.94 kg

DRUGS (2)
  1. ACCUTANE [Suspect]
     Indication: ACNE
     Route: 065
     Dates: start: 1996
  2. ACCUTANE [Suspect]
     Route: 065
     Dates: start: 1997, end: 199806

REACTIONS (12)
  - Crohn^s disease [Unknown]
  - Fistula [Unknown]
  - Intestinal obstruction [Unknown]
  - Abdominal abscess [Recovering/Resolving]
  - Depression [Unknown]
  - Inflammatory bowel disease [Unknown]
  - Cholelithiasis [Unknown]
  - Colitis ulcerative [Unknown]
  - Iron deficiency [Unknown]
  - Dry skin [Unknown]
  - Epistaxis [Unknown]
  - Alopecia [Unknown]
